FAERS Safety Report 24001432 (Version 1)
Quarter: 2024Q2

REPORT INFORMATION
  Report Type: Spontaneous
  Country: JP (occurrence: JP)
  Receive Date: 20240621
  Receipt Date: 20240621
  Transmission Date: 20240716
  Serious: Yes (Other)
  Sender: FDA-Public Use
  Company Number: JP-NShinyaku-EVA202403923ZZLILLY

PATIENT
  Age: 55 Year
  Sex: Female
  Weight: 44.6 kg

DRUGS (12)
  1. TADALAFIL [Suspect]
     Active Substance: TADALAFIL
     Indication: Product used for unknown indication
     Dosage: AFTER BREAKFAST
     Route: 048
  2. OPSUMIT [Suspect]
     Active Substance: MACITENTAN
     Indication: Scleroderma
     Dosage: AFTER BREAKFAST
     Route: 048
     Dates: start: 20240112, end: 20240207
  3. OPSUMIT [Suspect]
     Active Substance: MACITENTAN
     Indication: Skin ulcer
  4. UPTRAVI [Concomitant]
     Active Substance: SELEXIPAG
     Dosage: AFTER BREAKFAST AND DINNER
     Route: 048
  5. TOKISHIGYAKUKAGOSHUYUSHOKYOTO [Concomitant]
     Dosage: BEFORE EACH MEAL
     Route: 048
  6. AMLODIPINE BESYLATE [Concomitant]
     Active Substance: AMLODIPINE BESYLATE
     Dosage: AFTER BREAKFAST
     Route: 048
  7. CALONAL [Concomitant]
     Active Substance: ACETAMINOPHEN
     Dosage: AFTER EACH MEAL AND BEFORE GOING TO BED
     Route: 048
  8. LANSOPRAZOLE [Concomitant]
     Active Substance: LANSOPRAZOLE
     Dosage: AFTER BREAKFAST
     Route: 048
  9. BERAPROST SODIUM [Concomitant]
     Active Substance: BERAPROST SODIUM
     Dosage: AFTER EVERY MEAL
     Route: 048
  10. ICOSAPENT ETHYL [Concomitant]
     Active Substance: ICOSAPENT ETHYL
     Dosage: AFTER BREAKFAST AND DINNER
     Route: 048
  11. SARPOGRELATE HYDROCHLORIDE [Concomitant]
     Active Substance: SARPOGRELATE HYDROCHLORIDE
     Dosage: AFTER EVERY MEAL
     Route: 048
  12. ESFLURBIPROFEN\HERBALS [Concomitant]
     Active Substance: ESFLURBIPROFEN\HERBALS
     Dosage: 1 DOSAGE FORM, DAILY
     Route: 062

REACTIONS (1)
  - Pancytopenia [Recovered/Resolved]

NARRATIVE: CASE EVENT DATE: 20240115
